FAERS Safety Report 10041278 (Version 1)
Quarter: 2014Q1

REPORT INFORMATION
  Report Type: Spontaneous
  Country: PE (occurrence: PE)
  Receive Date: 20140327
  Receipt Date: 20140327
  Transmission Date: 20141002
  Serious: Yes (Hospitalization)
  Sender: FDA-Public Use
  Company Number: PE-PFIZER INC-2014085872

PATIENT
  Age: 76 Year
  Sex: Female

DRUGS (1)
  1. LOPID [Suspect]
     Dosage: UNK
     Route: 048

REACTIONS (2)
  - Gastric disorder [Unknown]
  - Abdominal distension [Not Recovered/Not Resolved]
